FAERS Safety Report 16350988 (Version 5)
Quarter: 2021Q3

REPORT INFORMATION
  Report Type: Spontaneous
  Country: CA (occurrence: CA)
  Receive Date: 20190524
  Receipt Date: 20210927
  Transmission Date: 20211014
  Serious: Yes (Hospitalization, Other)
  Sender: FDA-Public Use
  Company Number: CA-TEVA-2019-CA-1051735

PATIENT
  Age: 34 Year
  Sex: Female

DRUGS (10)
  1. CEFTRIAXONE FOR INJECTION USP [Suspect]
     Active Substance: CEFTRIAXONE
     Indication: RELAPSING FEVER
     Route: 042
  2. ERYTHROMYCIN. [Suspect]
     Active Substance: ERYTHROMYCIN
     Indication: RELAPSING FEVER
     Route: 065
  3. VACCINIA IMMUNOGLOBULINS [Suspect]
     Active Substance: HUMAN VACCINIA VIRUS IMMUNE GLOBULIN
     Indication: IMMUNE THROMBOCYTOPENIA
     Route: 042
  4. BETAMETHASONE. [Suspect]
     Active Substance: BETAMETHASONE
     Indication: PROPHYLAXIS
     Route: 065
  5. ERYTHROMYCIN. [Suspect]
     Active Substance: ERYTHROMYCIN
     Indication: RELAPSING FEVER
     Route: 065
  6. IMMUNE GLOBULIN (HUMAN) [Suspect]
     Active Substance: HUMAN IMMUNOGLOBULIN G
     Indication: IMMUNE THROMBOCYTOPENIA
     Dosage: IMMUNOGLOBULIN IV
     Route: 042
  7. ERYTHRO?BASE [Suspect]
     Active Substance: ERYTHROMYCIN
     Indication: RELAPSING FEVER
     Route: 065
  8. DOXYCYCLINE HYCLATE. [Suspect]
     Active Substance: DOXYCYCLINE HYCLATE
     Indication: PRODUCT USED FOR UNKNOWN INDICATION
     Route: 065
  9. CEFTRIAXONE FOR INJECTION USP [Suspect]
     Active Substance: CEFTRIAXONE
     Indication: MYOCARDITIS
     Route: 065
  10. FUROSEMIDE. [Suspect]
     Active Substance: FUROSEMIDE
     Indication: POLYURIA
     Route: 065

REACTIONS (6)
  - Product use in unapproved indication [Recovering/Resolving]
  - Heart rate increased [Unknown]
  - Pyrexia [Unknown]
  - Exposure during pregnancy [Unknown]
  - Jarisch-Herxheimer reaction [Unknown]
  - Off label use [Recovering/Resolving]
